FAERS Safety Report 10188077 (Version 1)
Quarter: 2014Q2

REPORT INFORMATION
  Report Type: Spontaneous
  Country: US (occurrence: US)
  Receive Date: 20140522
  Receipt Date: 20140522
  Transmission Date: 20141212
  Serious: No
  Sender: FDA-Public Use
  Company Number: US-SA-2013SA106625

PATIENT
  Age: 54 Year
  Sex: Female

DRUGS (2)
  1. SOLOSTAR [Suspect]
  2. LANTUS SOLOSTAR [Suspect]
     Indication: DIABETES MELLITUS
     Dosage: 15/45 UNITS AM/PM
     Route: 051

REACTIONS (1)
  - Injury associated with device [Unknown]
